FAERS Safety Report 7601494-0 (Version None)
Quarter: 2011Q3

REPORT INFORMATION
  Report Type: 
  Country: None (occurrence: None)
  Receive Date: 20110711
  Receipt Date: 20110701
  Transmission Date: 20111222
  Serious: Yes (Other)
  Sender: FDA-Public Use
  Company Number: IT-ASTRAZENECA-2011SE39921

PATIENT
  Sex: Male

DRUGS (8)
  1. PRILOSEC [Suspect]
     Indication: PROPHYLAXIS AGAINST GASTROINTESTINAL ULCER
     Route: 048
     Dates: start: 20110514, end: 20110606
  2. TAZOCIN (PIPERACILLIN SODIUM / SODIUM TAZOBACTAM) [Concomitant]
     Indication: PYREXIA
     Dosage: 4 G PIPERACILLIN SODIUM +  SODIUM TAZOBACTAM 0.500 G
     Route: 042
     Dates: start: 20110514, end: 20110610
  3. MERREM [Suspect]
     Indication: PYREXIA
     Route: 042
     Dates: start: 20110523, end: 20110606
  4. AZITHROMYCIN [Suspect]
     Indication: PYREXIA
     Route: 042
     Dates: start: 20110531, end: 20110531
  5. VFEND [Concomitant]
     Route: 042
     Dates: start: 20110514, end: 20110610
  6. ZYVOX [Suspect]
     Indication: PYREXIA
     Dosage: 10 SINGLE USE BAGS FOR INFUSION 300 ML 2 MG / ML
     Route: 042
     Dates: start: 20110514, end: 20110606
  7. LEVOFLOXACIN [Suspect]
     Indication: PYREXIA
     Dosage: 5 MG / ML 5 MG / ML SOLUTION FOR INFUSION 1 BOTTLE 100 ML
     Route: 042
     Dates: start: 20110526, end: 20110608
  8. ZOVIRAX [Suspect]
     Indication: PYREXIA
     Route: 042
     Dates: start: 20110514, end: 20110606

REACTIONS (2)
  - RASH GENERALISED [None]
  - SKIN EXFOLIATION [None]
